FAERS Safety Report 18116355 (Version 3)
Quarter: 2020Q3

REPORT INFORMATION
  Report Type: Spontaneous
  Country: FR (occurrence: FR)
  Receive Date: 20200805
  Receipt Date: 20200919
  Transmission Date: 20201103
  Serious: Yes (Other)
  Sender: FDA-Public Use
  Company Number: FR-GE HEALTHCARE LIFE SCIENCES-2020CSU003256

PATIENT

DRUGS (4)
  1. PENTACARINAT [Concomitant]
     Active Substance: PENTAMIDINE ISETHIONATE
     Dosage: UNK
     Dates: start: 20200720, end: 20200720
  2. CURACNE [Concomitant]
     Active Substance: ISOTRETINOIN
     Dosage: UNK
     Dates: start: 20200703, end: 20200716
  3. ADREVIEW [Suspect]
     Active Substance: IOBENGUANE I-123
     Indication: RADIOISOTOPE SCAN
     Dosage: 0.72 ML (222 MBQ), ONCE
     Route: 042
     Dates: start: 20200723, end: 20200723
  4. ADREVIEW [Suspect]
     Active Substance: IOBENGUANE I-123
     Indication: NEUROBLASTOMA

REACTIONS (2)
  - Radioisotope scan abnormal [Not Recovered/Not Resolved]
  - No adverse event [Recovered/Resolved]

NARRATIVE: CASE EVENT DATE: 20200724
